FAERS Safety Report 8810954 (Version 3)
Quarter: 2013Q1

REPORT INFORMATION
  Report Type: Spontaneous
  Country: GB (occurrence: GB)
  Receive Date: 20120927
  Receipt Date: 20130225
  Transmission Date: 20140127
  Serious: No
  Sender: FDA-Public Use
  Company Number: GB-ABBOTT-12P-167-0986004-00

PATIENT
  Age: 77 Year
  Sex: Male

DRUGS (2)
  1. PROSTAP [Suspect]
     Indication: PROSTATE CANCER
     Route: 058
     Dates: start: 20120805, end: 201212
  2. ZOLADEX [Concomitant]
     Indication: PRODUCT USED FOR UNKNOWN INDICATION

REACTIONS (2)
  - Injection site bruising [Recovered/Resolved]
  - Injection site swelling [Recovered/Resolved]
